FAERS Safety Report 4993872-3 (Version None)
Quarter: 2006Q2

REPORT INFORMATION
  Report Type: 
  Country: None (occurrence: None)
  Receive Date: 20060504
  Receipt Date: 20060504
  Transmission Date: 20061013
  Serious: Yes (Hospitalization)
  Sender: FDA-Public Use
  Company Number: None

PATIENT
  Age: 40 Year
  Sex: Female

DRUGS (2)
  1. CISPLATIN [Suspect]
     Indication: NON-HODGKIN'S LYMPHOMA
     Dosage: 25 MG/M2
     Dates: start: 20060206, end: 20060209
  2. CYTARABINE [Suspect]
     Indication: NON-HODGKIN'S LYMPHOMA
     Dosage: 2G/M2 CI ON DAY 5 IV DRIP
     Route: 041
     Dates: start: 20060210, end: 20060210

REACTIONS (6)
  - ANXIETY [None]
  - DRUG RESISTANCE [None]
  - MEDICATION ERROR [None]
  - NAUSEA [None]
  - TUMOUR LYSIS SYNDROME [None]
  - VOMITING [None]
